FAERS Safety Report 11548346 (Version 1)
Quarter: 2015Q3

REPORT INFORMATION
  Report Type: Spontaneous
  Country: US (occurrence: US)
  Receive Date: 20150924
  Receipt Date: 20150924
  Transmission Date: 20151125
  Serious: No
  Sender: FDA-Public Use
  Company Number: US-TARO-2014TAR00427

PATIENT
  Sex: Female

DRUGS (1)
  1. HYDROCORTISONE VALERATE CREAM USP 0.2% [Suspect]
     Active Substance: HYDROCORTISONE VALERATE
     Indication: DERMATITIS CONTACT
     Dosage: UNK UNK, 3X/DAY
     Route: 061

REACTIONS (3)
  - Dermatitis contact [Not Recovered/Not Resolved]
  - Drug ineffective [Not Recovered/Not Resolved]
  - Product quality issue [Not Recovered/Not Resolved]
